FAERS Safety Report 5908453-4 (Version None)
Quarter: 2008Q3

REPORT INFORMATION
  Report Type: 
  Country: None (occurrence: None)
  Receive Date: 20080930
  Receipt Date: 20080916
  Transmission Date: 20090109
  Serious: Yes (Other)
  Sender: FDA-Public Use
  Company Number: 238849J08USA

PATIENT
  Age: 71 Year
  Sex: Male
  Weight: 59 kg

DRUGS (7)
  1. REBIF [Suspect]
     Indication: MULTIPLE SCLEROSIS
     Dates: end: 20080501
  2. UNSPECIFIED INSULIN (INSULIN /0030501/) [Concomitant]
  3. HUMULIN R [Concomitant]
  4. GLIPIZIDE [Concomitant]
  5. ACTOS [Concomitant]
  6. LEVEMIR [Concomitant]
  7. UNSPECIFIED BLOOD PRESSURE MEDICATION (ANTIHYPERTENSIVES) [Concomitant]

REACTIONS (2)
  - BLOOD COUNT ABNORMAL [None]
  - RENAL IMPAIRMENT [None]
